FAERS Safety Report 10175015 (Version 1)
Quarter: 2014Q2

REPORT INFORMATION
  Report Type: Report from Study
  Country: BR (occurrence: BR)
  Receive Date: 20140515
  Receipt Date: 20140515
  Transmission Date: 20141212
  Serious: Yes (Hospitalization, Disabling, Other)
  Sender: FDA-Public Use
  Company Number: PHHY2014BR059053

PATIENT
  Age: 96 Year
  Sex: Female
  Weight: 56 kg

DRUGS (15)
  1. DIOVAN [Suspect]
     Indication: HYPERTENSION
     Dosage: 1 TABLET (80 MG) DAILY
     Route: 048
  2. DIOVAN [Suspect]
     Dosage: 1 TABLET (160 MG) DAILY, IN THE MORNING
     Route: 048
     Dates: end: 20130227
  3. DIOVAN [Suspect]
     Dosage: 0.5 TABLET (160 MG), UNK
  4. DIOVAN [Suspect]
     Dosage: 80 MG, UNK
  5. LASIX [Concomitant]
     Indication: DIURETIC THERAPY
     Dosage: 40 MG, UNK
  6. AMIODARONE [Concomitant]
     Indication: ARRHYTHMIA
     Dosage: 100 MG, UNK
  7. OMEPRAZOLE [Concomitant]
     Indication: GASTROINTESTINAL DISORDER
     Dosage: 20 MG, UNK
     Dates: start: 20130227
  8. BENERVA [Concomitant]
     Indication: VITAMIN SUPPLEMENTATION
     Dosage: 300 MG, UNK
     Dates: start: 20130322
  9. QUETIAPINE FUMARATE [Concomitant]
     Indication: SLEEP DISORDER
     Dosage: 25 MG, UNK
     Dates: start: 20130227
  10. XARELTO [Concomitant]
     Indication: ANTICOAGULANT THERAPY
     Dosage: 15 MG, UNK
     Dates: start: 201306
  11. MIOCALVEN [Concomitant]
     Indication: VITAMIN D
     Dosage: 500 MG, UNK
  12. SLOW K [Concomitant]
     Indication: ELECTROLYTE SUBSTITUTION THERAPY
     Dosage: 600 MG, UNK
  13. DEPURA [Concomitant]
     Indication: VITAMIN D
     Dosage: 300 UN, UNK
  14. MIRTAZAPINE [Concomitant]
     Indication: DEPRESSION
     Dosage: 300 MG, UNK
  15. MULTI-VIT [Concomitant]
     Dosage: UNK UKN, UNK

REACTIONS (7)
  - Cerebrovascular accident [Recovering/Resolving]
  - Gait disturbance [Recovering/Resolving]
  - Speech disorder [Recovering/Resolving]
  - Nerve root injury cervical [Recovering/Resolving]
  - Feeling of despair [Recovering/Resolving]
  - Emotional disorder [Recovering/Resolving]
  - Wrong technique in drug usage process [Unknown]
